FAERS Safety Report 7306710-0 (Version None)
Quarter: 2011Q1

REPORT INFORMATION
  Report Type: 
  Country: None (occurrence: None)
  Receive Date: 20110222
  Receipt Date: 20110215
  Transmission Date: 20110831
  Serious: Yes (Hospitalization)
  Sender: FDA-Public Use
  Company Number: US-US-EMD SERONO, INC.-7001594

PATIENT
  Sex: Female

DRUGS (3)
  1. MULTIVITAMIN [Concomitant]
  2. REBIF [Suspect]
     Indication: MULTIPLE SCLEROSIS
     Route: 058
     Dates: start: 20090801
  3. UNSPECIFIED MEDICATIONS [Concomitant]
     Indication: PAIN

REACTIONS (3)
  - MENSTRUAL DISORDER [None]
  - FEELING ABNORMAL [None]
  - OVARIAN CYST [None]
